FAERS Safety Report 6422999-4 (Version None)
Quarter: 2009Q4

REPORT INFORMATION
  Report Type: 
  Country: None (occurrence: None)
  Receive Date: 20091102
  Receipt Date: 20090213
  Transmission Date: 20100525
  Serious: Yes (Other)
  Sender: FDA-Public Use
  Company Number: US-BAYER-US-2007-025621

PATIENT
  Age: 72 Year
  Sex: Female
  Weight: 83 kg

DRUGS (41)
  1. MAGNEVIST [Suspect]
     Indication: NUCLEAR MAGNETIC RESONANCE IMAGING
     Route: 042
     Dates: start: 20051017, end: 20051017
  2. MAGNEVIST [Suspect]
     Route: 042
     Dates: start: 20060131, end: 20060131
  3. MAGNEVIST [Suspect]
     Route: 042
     Dates: start: 20060503, end: 20060503
  4. MAGNEVIST [Suspect]
     Route: 042
     Dates: start: 20060606, end: 20060606
  5. MAGNEVIST [Suspect]
     Dosage: TOTAL DAILY DOSE: 20 ML
     Route: 042
     Dates: start: 20061218, end: 20061218
  6. MAGNEVIST [Suspect]
     Dosage: TOTAL DAILY DOSE: 15 ML
     Route: 042
     Dates: start: 20070505, end: 20070505
  7. MAGNEVIST [Suspect]
     Dosage: AS USED: 19 ML
     Route: 042
     Dates: start: 20030909, end: 20030909
  8. OMNISCAN [Suspect]
     Indication: NUCLEAR MAGNETIC RESONANCE IMAGING
  9. OPTIMARK [Suspect]
     Indication: NUCLEAR MAGNETIC RESONANCE IMAGING
  10. MULTIHANCE [Suspect]
     Indication: NUCLEAR MAGNETIC RESONANCE IMAGING
  11. PROHANCE [Suspect]
     Indication: NUCLEAR MAGNETIC RESONANCE IMAGING
  12. COUMADIN [Concomitant]
     Indication: HYPERCOAGULATION
     Dosage: UNIT DOSE: 2 MG
  13. NEURONTIN [Concomitant]
  14. LIPITOR [Concomitant]
  15. AMBIEN [Concomitant]
  16. ATENOLOL [Concomitant]
  17. PAXIL [Concomitant]
  18. NORVASC [Concomitant]
  19. COZAAR [Concomitant]
  20. SYNTHROID [Concomitant]
  21. ULTRAM [Concomitant]
  22. FOLIC ACID [Concomitant]
  23. ZOCOR [Concomitant]
  24. PLENDIL [Concomitant]
  25. PAMELOR [Concomitant]
  26. LASIX [Concomitant]
  27. ZZROFECOXIB [Concomitant]
  28. ALLEGRA [Concomitant]
  29. ATIVAN [Concomitant]
  30. ENGERIX-B [Concomitant]
  31. EPOGEN [Concomitant]
     Dosage: DOSE: 10,000 U/ML
     Dates: start: 20040719
  32. IBUPROFEN [Concomitant]
  33. NEPHROVITE [Concomitant]
  34. TUMS [Concomitant]
  35. VENOFER [Concomitant]
  36. VITAMIN E [Concomitant]
  37. ZEMPLAR [Concomitant]
  38. ASPIRIN [Concomitant]
  39. LYRICA [Concomitant]
  40. ZINC [Concomitant]
  41. RENAGEL [Concomitant]

REACTIONS (23)
  - ANHEDONIA [None]
  - ANXIETY [None]
  - ASTHENIA [None]
  - EMOTIONAL DISTRESS [None]
  - ERYTHEMA [None]
  - FATIGUE [None]
  - FIBROSIS [None]
  - GAIT DISTURBANCE [None]
  - GENERAL PHYSICAL HEALTH DETERIORATION [None]
  - HYPOAESTHESIA [None]
  - MOBILITY DECREASED [None]
  - MUSCLE CONTRACTURE [None]
  - MUSCULOSKELETAL STIFFNESS [None]
  - MYALGIA [None]
  - NEPHROGENIC SYSTEMIC FIBROSIS [None]
  - OEDEMA PERIPHERAL [None]
  - PAIN [None]
  - PAIN IN EXTREMITY [None]
  - PEAU D'ORANGE [None]
  - SCAR [None]
  - SKIN HYPERTROPHY [None]
  - SKIN INDURATION [None]
  - SKIN TIGHTNESS [None]
